FAERS Safety Report 11734228 (Version 1)
Quarter: 2015Q4

REPORT INFORMATION
  Report Type: Spontaneous
  Country: US (occurrence: US)
  Receive Date: 20151113
  Receipt Date: 20151113
  Transmission Date: 20160304
  Serious: No
  Sender: FDA-Public Use
  Company Number: US-009507513-1511USA002606

PATIENT
  Sex: Female

DRUGS (1)
  1. JANUMET XR [Suspect]
     Active Substance: METFORMIN HYDROCHLORIDE\SITAGLIPTIN PHOSPHATE
     Dosage: 1 DF, QD,  STRENGTH 100/1000 UNITS UNSPECIFIED, PATIENT TOOK 1 DAILY
     Route: 048

REACTIONS (2)
  - Intercepted drug dispensing error [Unknown]
  - No adverse event [Unknown]
